FAERS Safety Report 14080306 (Version 1)
Quarter: 2017Q4

REPORT INFORMATION
  Report Type: Spontaneous
  Country: IT (occurrence: IT)
  Receive Date: 20171012
  Receipt Date: 20171012
  Transmission Date: 20180321
  Serious: Yes (Life-Threatening)
  Sender: FDA-Public Use
  Company Number: IT-BAYER-2017-197113

PATIENT
  Age: 71 Year
  Sex: Female

DRUGS (6)
  1. CARDIOASPIRIN 100 MG [Concomitant]
     Active Substance: ASPIRIN
     Dosage: 1 DF, QD
  2. PANTORC [Concomitant]
     Active Substance: PANTOPRAZOLE SODIUM
     Dosage: 1 DF, QD
  3. CONTROL [Concomitant]
     Dosage: 1 DF, QD
  4. ZOLOFT [Concomitant]
     Active Substance: SERTRALINE HYDROCHLORIDE
  5. CARVEDILOL. [Concomitant]
     Active Substance: CARVEDILOL
     Dosage: 6.25 MG, QD
  6. ULTRAVIST [Suspect]
     Active Substance: IOPROMIDE
     Indication: COMPUTERISED TOMOGRAM
     Dosage: 100 ML, ONCE
     Dates: start: 20170621, end: 20170621

REACTIONS (3)
  - Respite care [Recovered/Resolved]
  - Pulse absent [Recovered/Resolved]
  - Anaphylactic shock [Recovered/Resolved]

NARRATIVE: CASE EVENT DATE: 20170621
